FAERS Safety Report 4684027-0 (Version None)
Quarter: 2005Q2

REPORT INFORMATION
  Report Type: 
  Country: None (occurrence: None)
  Receive Date: 20050602
  Receipt Date: 20050314
  Transmission Date: 20051028
  Serious: Yes (Other)
  Sender: FDA-Public Use
  Company Number: 398558

PATIENT
  Sex: Female

DRUGS (1)
  1. LARIAM [Suspect]
     Dosage: ORAL
     Route: 048

REACTIONS (4)
  - AMNESIA [None]
  - ANXIETY [None]
  - DISTURBANCE IN ATTENTION [None]
  - SUICIDAL IDEATION [None]
